FAERS Safety Report 6357814-0 (Version None)
Quarter: 2009Q3

REPORT INFORMATION
  Report Type: 
  Country: None (occurrence: None)
  Receive Date: 20090916
  Receipt Date: 20090910
  Transmission Date: 20100115
  Serious: Yes (Hospitalization)
  Sender: FDA-Public Use
  Company Number: FR-WYE-G04409709

PATIENT
  Sex: Female

DRUGS (11)
  1. TAZOCILLINE [Suspect]
     Indication: CELLULITIS
     Route: 042
     Dates: start: 20090724, end: 20090901
  2. TAREG [Concomitant]
     Dosage: UNKNOWN
     Route: 048
  3. KARDEGIC [Concomitant]
     Dosage: UNKNOWN
  4. GLUCOPHAGE [Concomitant]
     Indication: DIABETIC VASCULAR DISORDER
     Dosage: UNKNOWN
     Route: 048
  5. INSULATARD [Concomitant]
     Indication: DIABETIC VASCULAR DISORDER
     Dosage: UNKNOWN
  6. INEXIUM [Concomitant]
     Dosage: UNKNOWN
     Dates: start: 20090101, end: 20090901
  7. CARDENSIEL [Concomitant]
     Dosage: UNKNOWN
     Route: 048
     Dates: start: 20090101
  8. PARACETAMOL [Concomitant]
     Dosage: UNKNOWN
     Dates: start: 20090101
  9. LOVENOX [Concomitant]
     Dosage: UNKNOWN
     Dates: start: 20090101
  10. CIFLOX [Suspect]
     Indication: CELLULITIS
     Route: 042
     Dates: start: 20090724, end: 20090901
  11. FORLAX [Concomitant]
     Dosage: UNKNOWN
     Route: 048

REACTIONS (4)
  - BLADDER DILATATION [None]
  - BLOOD PRESSURE DECREASED [None]
  - NEUTROPENIA [None]
  - PYREXIA [None]
